FAERS Safety Report 10083990 (Version 1)
Quarter: 2014Q2

REPORT INFORMATION
  Report Type: Report from Study
  Country: US (occurrence: CA)
  Receive Date: 20140417
  Receipt Date: 20140417
  Transmission Date: 20141212
  Serious: Yes (Death, Hospitalization)
  Sender: FDA-Public Use
  Company Number: CA-JNJFOC-20140409771

PATIENT
  Age: 36 Year
  Sex: Female

DRUGS (2)
  1. TYLENOL EXTRA STRENGTH [Suspect]
     Route: 065
  2. TYLENOL EXTRA STRENGTH [Suspect]
     Indication: HEADACHE
     Route: 065
     Dates: end: 19940417

REACTIONS (6)
  - Acute hepatic failure [Fatal]
  - Overdose [Fatal]
  - Brain oedema [Fatal]
  - Renal failure [Fatal]
  - Intestinal ischaemia [Fatal]
  - Peritonitis [Fatal]
